FAERS Safety Report 9784299 (Version 3)
Quarter: 2014Q1

REPORT INFORMATION
  Report Type: Spontaneous
  Country: US (occurrence: US)
  Receive Date: 20131226
  Receipt Date: 20140303
  Transmission Date: 20141002
  Serious: No
  Sender: FDA-Public Use
  Company Number: US-BIOGENIDEC-2013BI122340

PATIENT
  Age: 59 Year
  Sex: Male

DRUGS (21)
  1. TECFIDERA [Suspect]
     Indication: MULTIPLE SCLEROSIS
     Route: 048
     Dates: start: 201309
  2. TECFIDERA [Suspect]
     Indication: MULTIPLE SCLEROSIS
     Route: 048
     Dates: start: 201310
  3. AMPYRA [Concomitant]
     Indication: MULTIPLE SCLEROSIS
     Route: 048
     Dates: start: 20131015
  4. ABILIFY [Concomitant]
     Route: 048
     Dates: start: 20131106
  5. ACETAMINOPHEN [Concomitant]
     Route: 048
     Dates: start: 20130919
  6. BISAC-EVAC [Concomitant]
     Dates: start: 20130919
  7. CALCIUM CARBONATE [Concomitant]
     Route: 048
     Dates: start: 20130919
  8. CALMOSEPTINE [Concomitant]
     Dates: start: 20130919
  9. DIVALPROEX SODIUM [Concomitant]
     Route: 048
     Dates: start: 20130919
  10. FLUOXETINE HCL [Concomitant]
     Route: 048
     Dates: start: 20090218
  11. LAMICTAL [Concomitant]
     Route: 048
     Dates: start: 20131015
  12. LORAZEPAM [Concomitant]
     Route: 048
     Dates: start: 20130919
  13. MI-ACID [Concomitant]
     Route: 048
     Dates: start: 20130919
  14. MILK OF MAGNESIA [Concomitant]
     Indication: CONSTIPATION
     Route: 048
     Dates: start: 20130919
  15. PANTOPRAZOLE SODIUM [Concomitant]
     Route: 048
     Dates: start: 20130919
  16. RISPERIDONE [Concomitant]
     Route: 048
     Dates: start: 20130919
  17. SENEXON [Concomitant]
     Route: 048
     Dates: start: 20130919
  18. SIMETHICONE [Concomitant]
     Route: 048
     Dates: start: 20131015
  19. TRAMADOL HCL [Concomitant]
     Indication: PAIN
     Route: 048
     Dates: start: 20130919
  20. TRAZODONE HCL [Concomitant]
     Indication: INSOMNIA
     Route: 048
     Dates: start: 20130919
  21. VIT D3 [Concomitant]
     Route: 048
     Dates: start: 20131023

REACTIONS (2)
  - Depression [Not Recovered/Not Resolved]
  - Flushing [Not Recovered/Not Resolved]
